FAERS Safety Report 7971711-6 (Version None)
Quarter: 2011Q4

REPORT INFORMATION
  Report Type: 
  Country: None (occurrence: None)
  Receive Date: 20111212
  Receipt Date: 20111130
  Transmission Date: 20120403
  Serious: Yes (Death, Hospitalization)
  Sender: FDA-Public Use
  Company Number: US-ACTELION-A-NJ2011-57032

PATIENT

DRUGS (3)
  1. LETAIRIS [Concomitant]
  2. EPOPROSTENOL SODIUM [Suspect]
     Indication: PULMONARY ARTERIAL HYPERTENSION
     Dosage: 243 NG/KG, PER MIN
     Route: 041
     Dates: start: 20110425, end: 20111124
  3. SILDENAFIL [Concomitant]

REACTIONS (2)
  - PNEUMONIA [None]
  - DEATH [None]
